FAERS Safety Report 24447046 (Version 1)
Quarter: 2024Q4

REPORT INFORMATION
  Report Type: Spontaneous
  Country: GB (occurrence: GB)
  Receive Date: 20241016
  Receipt Date: 20241016
  Transmission Date: 20250114
  Serious: Yes (Hospitalization, Other)
  Sender: ELI LILLY AND COMPANY
  Company Number: GB-MHRA-WEBRADR-202410051308140460-GMCHZ

PATIENT
  Age: 29 Year
  Sex: Female
  Weight: 78 kg

DRUGS (2)
  1. MOUNJARO [Suspect]
     Active Substance: TIRZEPATIDE
     Indication: Weight control
     Dosage: 2.5 MG, WEEKLY (1/W)
     Route: 058
  2. MOUNJARO [Suspect]
     Active Substance: TIRZEPATIDE
     Dosage: 5 MG, WEEKLY (1/W)
     Route: 058
     Dates: start: 20240925, end: 20240926

REACTIONS (1)
  - Ovarian cyst ruptured [Recovering/Resolving]

NARRATIVE: CASE EVENT DATE: 20240928
